FAERS Safety Report 20360541 (Version 1)
Quarter: 2022Q1

REPORT INFORMATION
  Report Type: Spontaneous
  Country: IN (occurrence: IN)
  Receive Date: 20220121
  Receipt Date: 20220121
  Transmission Date: 20220424
  Serious: Yes (Other)
  Sender: FDA-Public Use
  Company Number: IN-SANOFI US-2022SA013860

PATIENT
  Age: 45 Year
  Sex: Male

DRUGS (5)
  1. PREDNISOLONE [Suspect]
     Active Substance: PREDNISOLONE
     Indication: Scleritis
     Dosage: 1 MG/KG, QD
     Route: 048
  2. PREDNISOLONE ACETATE [Suspect]
     Active Substance: PREDNISOLONE ACETATE
     Indication: Scleritis
     Dosage: UNK UNK, 6IW
     Route: 061
  3. TRIAMCINOLONE ACETONIDE [Suspect]
     Active Substance: TRIAMCINOLONE ACETONIDE
     Indication: Scleritis
     Dosage: 4 MG
     Route: 057
  4. INDOMETHACIN [Concomitant]
     Active Substance: INDOMETHACIN
     Indication: Scleritis
     Dosage: 75 MG, BID
     Route: 048
  5. INDOMETHACIN [Concomitant]
     Active Substance: INDOMETHACIN
     Indication: Necrotising scleritis
     Dosage: 50 MG, BID
     Route: 048

REACTIONS (6)
  - Necrotising scleritis [Recovered/Resolved]
  - Ocular hyperaemia [Recovered/Resolved]
  - Scleral thinning [Recovered/Resolved]
  - Drug ineffective [Recovered/Resolved]
  - Staphyloma [Recovered/Resolved]
  - Scleral disorder [Recovered/Resolved]
